FAERS Safety Report 5295036-5 (Version None)
Quarter: 2007Q2

REPORT INFORMATION
  Report Type: 
  Country: None (occurrence: None)
  Receive Date: 20070412
  Receipt Date: 20070403
  Transmission Date: 20071010
  Serious: Yes (Hospitalization)
  Sender: FDA-Public Use
  Company Number: US-BAXTER-2007BH002769

PATIENT
  Age: 61 Year
  Sex: Female
  Weight: 71 kg

DRUGS (14)
  1. IMMUNE GLOBULIN INTRAVENOUS (HUMAN) [Suspect]
     Indication: PANEL-REACTIVE ANTIBODY
     Route: 042
     Dates: start: 20060524, end: 20061025
  2. IMMUNE GLOBULIN INTRAVENOUS (HUMAN) [Suspect]
     Indication: RENAL TRANSPLANT
     Route: 042
     Dates: start: 20060524, end: 20061025
  3. IMMUNE GLOBULIN INTRAVENOUS (HUMAN) [Suspect]
     Route: 042
     Dates: start: 20060524, end: 20061025
  4. IMMUNE GLOBULIN INTRAVENOUS (HUMAN) [Suspect]
     Route: 042
     Dates: start: 20060524, end: 20061025
  5. IMMUNE GLOBULIN INTRAVENOUS (HUMAN) [Suspect]
     Route: 042
     Dates: start: 20060524, end: 20061025
  6. IMMUNE GLOBULIN INTRAVENOUS (HUMAN) [Suspect]
     Route: 042
     Dates: start: 20060524, end: 20061025
  7. IMMUNE GLOBULIN INTRAVENOUS (HUMAN) [Suspect]
     Route: 042
     Dates: start: 20060524, end: 20061025
  8. IMMUNE GLOBULIN INTRAVENOUS (HUMAN) [Suspect]
     Route: 042
     Dates: start: 20060524, end: 20061025
  9. IMMUNE GLOBULIN INTRAVENOUS (HUMAN) [Suspect]
     Route: 042
     Dates: start: 20060524, end: 20061025
  10. IMMUNE GLOBULIN INTRAVENOUS (HUMAN) [Suspect]
     Route: 042
     Dates: start: 20060524, end: 20061025
  11. IMMUNE GLOBULIN INTRAVENOUS (HUMAN) [Suspect]
     Route: 042
     Dates: start: 20060524, end: 20061025
  12. IMMUNE GLOBULIN INTRAVENOUS (HUMAN) [Suspect]
     Route: 042
     Dates: start: 20060524, end: 20061025
  13. BENADRYL [Concomitant]
     Indication: ALLERGY PROPHYLAXIS
     Route: 048
     Dates: start: 20061024, end: 20061025
  14. TYLENOL [Concomitant]
     Indication: PROPHYLAXIS
     Route: 048
     Dates: start: 20061025, end: 20061025

REACTIONS (1)
  - HEPATITIS B DNA ASSAY POSITIVE [None]
